FAERS Safety Report 9415827 (Version 1)
Quarter: 2013Q3

REPORT INFORMATION
  Report Type: Spontaneous
  Country: US (occurrence: US)
  Receive Date: 20130724
  Receipt Date: 20130724
  Transmission Date: 20140515
  Serious: Yes (Hospitalization, Other)
  Sender: FDA-Public Use
  Company Number: US-ROCHE-789926

PATIENT
  Sex: Male
  Weight: 49.49 kg

DRUGS (3)
  1. ACCUTANE [Suspect]
     Indication: ACNE
     Route: 065
     Dates: start: 198201, end: 198401
  2. ACCUTANE [Suspect]
     Route: 065
     Dates: start: 1984, end: 1985
  3. ACCUTANE [Suspect]
     Route: 065
     Dates: start: 1983, end: 1984

REACTIONS (8)
  - Crohn^s disease [Unknown]
  - Emotional distress [Unknown]
  - Inflammatory bowel disease [Unknown]
  - Intestinal obstruction [Unknown]
  - Intestinal haemorrhage [Unknown]
  - Depression [Unknown]
  - Rectal abscess [Unknown]
  - Anal fistula [Unknown]
